FAERS Safety Report 16669103 (Version 1)
Quarter: 2019Q3

REPORT INFORMATION
  Report Type: Spontaneous
  Country: CA (occurrence: CA)
  Receive Date: 20190805
  Receipt Date: 20190805
  Transmission Date: 20191004
  Serious: Yes (Other)
  Sender: FDA-Public Use
  Company Number: CA-BAYER-2019-141539

PATIENT
  Age: 23 Year
  Sex: Female

DRUGS (2)
  1. TYLENOL SINUS CONGESTION + PAIN [Concomitant]
     Indication: EAR PAIN
     Dates: start: 20160227, end: 20160228
  2. MIRENA [Suspect]
     Active Substance: LEVONORGESTREL
     Indication: CONTRACEPTION
     Dosage: 20 MCG/24HR, CONT
     Route: 015
     Dates: start: 20160205, end: 20170521

REACTIONS (11)
  - Panic attack [Recovered/Resolved]
  - Dizziness [Recovered/Resolved]
  - Depression [Recovered/Resolved]
  - Anxiety [Recovered/Resolved]
  - Aggression [Recovered/Resolved]
  - Migraine [Recovered/Resolved]
  - Mood swings [Recovered/Resolved]
  - Suicide attempt [None]
  - Anhedonia [Recovered/Resolved]
  - Fatigue [Recovered/Resolved with Sequelae]
  - Loss of libido [Recovered/Resolved with Sequelae]

NARRATIVE: CASE EVENT DATE: 20160310
